FAERS Safety Report 19376314 (Version 2)
Quarter: 2022Q4

REPORT INFORMATION
  Report Type: Other
  Country: CA (occurrence: CA)
  Receive Date: 20210604
  Receipt Date: 20221107
  Transmission Date: 20230113
  Serious: Yes (Other)
  Sender: FDA-Public Use
  Company Number: CA-002147023-NVSC2020CA303992

PATIENT
  Age: 49 Year
  Sex: Male

DRUGS (1)
  1. LUCENTIS [Suspect]
     Active Substance: RANIBIZUMAB
     Indication: Retinal vein occlusion
     Dosage: 1 DF
     Route: 031

REACTIONS (3)
  - Blindness [Unknown]
  - Condition aggravated [Unknown]
  - Frustration tolerance decreased [Unknown]
